FAERS Safety Report 19372937 (Version 1)
Quarter: 2021Q2

REPORT INFORMATION
  Report Type: Report from Study
  Country: ES (occurrence: ES)
  Receive Date: 20210604
  Receipt Date: 20210604
  Transmission Date: 20210717
  Serious: Yes (Hospitalization)
  Sender: FDA-Public Use
  Company Number: ES-TEVA-2021-ES-1917939

PATIENT
  Age: 63 Year
  Sex: Male

DRUGS (1)
  1. RISPERIDONA (7201A) [Suspect]
     Active Substance: RISPERIDONE
     Route: 048
     Dates: start: 20190820, end: 20190904

REACTIONS (2)
  - Rhabdomyolysis [Recovered/Resolved]
  - Acute kidney injury [Recovered/Resolved]

NARRATIVE: CASE EVENT DATE: 20190820
